FAERS Safety Report 8401284-5 (Version None)
Quarter: 2012Q2

REPORT INFORMATION
  Report Type: 
  Country: None (occurrence: None)
  Receive Date: 20120529
  Receipt Date: 20120515
  Transmission Date: 20120825
  Serious: Yes (Life-Threatening, Hospitalization, Other)
  Sender: FDA-Public Use
  Company Number: ACO_26725_2011

PATIENT
  Age: 60 Year
  Sex: Female
  Weight: 63.5 kg

DRUGS (33)
  1. TYSABRI [Suspect]
     Indication: PRODUCT USED FOR UNKNOWN INDICATION
     Dosage: EVERY 4 WEEKS, INTRAVENOUS
     Route: 042
     Dates: end: 20110901
  2. HYDROCHLOROTHIAZIDE [Suspect]
     Indication: PRODUCT USED FOR UNKNOWN INDICATION
  3. MACROBID /00024401/ (NITROFURANTOIN) [Concomitant]
  4. CRESTOR [Concomitant]
  5. AMPYRA [Suspect]
     Indication: GAIT DISTURBANCE
     Dosage: 10 MG, Q 12 HRS
     Dates: start: 20110814, end: 20110101
  6. ZOCOR [Concomitant]
  7. MIRALAX /00754501/ (MACROGOL) [Concomitant]
  8. LOPRESSOR [Concomitant]
  9. EFFEXOR [Concomitant]
  10. BACLOFEN [Concomitant]
  11. AMOXICILLIN [Concomitant]
  12. AMITIZA [Concomitant]
  13. ERGOCALCIFEROL [Concomitant]
  14. CORTICOSTEROID NOS (CORTICOSTEROID NOS) [Suspect]
     Indication: HYPERSENSITIVITY
  15. ELAVIL /00002202/ (AMITRIPTYLINE HYDROCHLORIDE) [Concomitant]
  16. OMEPRAZOLE [Concomitant]
  17. REQUIP [Concomitant]
  18. XANAX [Concomitant]
  19. LORTAB [Concomitant]
  20. LIDODERM [Concomitant]
  21. ANTIVERT [Concomitant]
  22. PROVIGIL [Concomitant]
  23. ZOFRAN /00955301/ (ONDANSETRON) [Concomitant]
  24. COLACE (DOCUSATE SODIUM) [Concomitant]
  25. IBUPROFEN [Concomitant]
  26. ASPIRIN [Concomitant]
  27. AMBIEN [Concomitant]
  28. LISINOPRIL /00894002/ (LISINOPRIL DIHYDRATE) [Concomitant]
  29. ACETAMINOPHEN [Concomitant]
  30. BISACODYL [Concomitant]
  31. LACTULOSE [Concomitant]
  32. MAGNESIUM HYDROXIDE TAB [Concomitant]
  33. SENOKOT /00142201/ (SENNA ALEXANDRINA) [Concomitant]

REACTIONS (35)
  - STAPHYLOCOCCAL INFECTION [None]
  - ELECTROCARDIOGRAM QT PROLONGED [None]
  - UNRESPONSIVE TO STIMULI [None]
  - LIVER FUNCTION TEST ABNORMAL [None]
  - JC VIRUS INFECTION [None]
  - URINARY TRACT INFECTION [None]
  - MALAISE [None]
  - CONSTIPATION [None]
  - QUADRIPARESIS [None]
  - DYSPNOEA [None]
  - SYNCOPE [None]
  - PLEURAL EFFUSION [None]
  - ASTHENIA [None]
  - EYE SWELLING [None]
  - PERICARDIAL EFFUSION [None]
  - MUSCLE SPASMS [None]
  - ALANINE AMINOTRANSFERASE INCREASED [None]
  - VENA CAVA THROMBOSIS [None]
  - SUPERIOR VENA CAVA SYNDROME [None]
  - HYPOTENSION [None]
  - THROAT TIGHTNESS [None]
  - THROMBOSIS IN DEVICE [None]
  - ASPARTATE AMINOTRANSFERASE INCREASED [None]
  - ANXIETY [None]
  - GAIT DISTURBANCE [None]
  - MOVEMENT DISORDER [None]
  - HYPONATRAEMIA [None]
  - DRUG HYPERSENSITIVITY [None]
  - SINUS TACHYCARDIA [None]
  - DECREASED APPETITE [None]
  - CHYLOTHORAX [None]
  - STRESS [None]
  - PSYCHOTIC DISORDER [None]
  - VOMITING [None]
  - LOCAL SWELLING [None]
